FAERS Safety Report 5683028-3 (Version None)
Quarter: 2008Q1

REPORT INFORMATION
  Report Type: 
  Country: None (occurrence: None)
  Receive Date: 20080327
  Receipt Date: 20080319
  Transmission Date: 20080703
  Serious: Yes (Other)
  Sender: FDA-Public Use
  Company Number: PHEH2006US02525

PATIENT
  Age: 56 Year
  Sex: Female
  Weight: 72.562 kg

DRUGS (12)
  1. AREDIA [Suspect]
     Indication: METASTASES TO BONE
     Dosage: 60MG QMO
     Route: 042
     Dates: start: 19981101, end: 20021219
  2. ZOMETA [Suspect]
     Indication: METASTASES TO BONE
     Dosage: 4 MG Q 4 WEEKS
     Route: 042
     Dates: start: 20030115
  3. TAMOXIFEN CITRATE [Concomitant]
     Indication: BREAST CANCER
  4. ARIMIDEX [Concomitant]
     Indication: BREAST CANCER
  5. FEMARA [Concomitant]
     Indication: BREAST CANCER
     Dosage: 2.5 MG, QD
     Route: 048
     Dates: start: 19981101
  6. PROZAC [Concomitant]
     Indication: DEPRESSION
     Dosage: 20 MG, QD
     Route: 048
  7. BELLAMINE S [Concomitant]
     Dosage: UNK, BID
     Route: 048
  8. ROBAXIN [Concomitant]
  9. VITAMIN CAP [Concomitant]
  10. IMODIUM [Concomitant]
  11. RESTORIL [Concomitant]
  12. HYDROXYZINE [Concomitant]

REACTIONS (22)
  - ABSCESS JAW [None]
  - ANXIETY [None]
  - BONE DEBRIDEMENT [None]
  - BONE DISORDER [None]
  - BONE EROSION [None]
  - DEPRESSION [None]
  - HYPERBARIC OXYGEN THERAPY [None]
  - IMPAIRED HEALING [None]
  - INFLAMMATION [None]
  - INJURY [None]
  - LESION EXCISION [None]
  - LIVER FUNCTION TEST ABNORMAL [None]
  - ORAL DISCOMFORT [None]
  - ORAL DISORDER [None]
  - ORAL INFECTION [None]
  - ORAL SURGERY [None]
  - OSTEONECROSIS [None]
  - PAIN [None]
  - PAIN IN JAW [None]
  - TOOTH DISORDER [None]
  - TOOTH EXTRACTION [None]
  - X-RAY ABNORMAL [None]
